FAERS Safety Report 23221143 (Version 4)
Quarter: 2023Q4

REPORT INFORMATION
  Report Type: Spontaneous
  Country: US (occurrence: US)
  Receive Date: 20231123
  Receipt Date: 20231220
  Transmission Date: 20240109
  Serious: Yes (Death, Other)
  Sender: FDA-Public Use
  Company Number: US-SANOFI-01847863

PATIENT
  Age: 80 Year
  Sex: Male

DRUGS (2)
  1. CAPRELSA [Suspect]
     Active Substance: VANDETANIB
     Indication: Medullary thyroid cancer
     Dosage: 300 MG, QOD
     Route: 048
     Dates: start: 20220126
  2. CAPRELSA [Suspect]
     Active Substance: VANDETANIB
     Indication: Thyroid cancer
     Dosage: 300 MG, QD
     Route: 048

REACTIONS (3)
  - Death [Fatal]
  - Gingival disorder [Unknown]
  - Gingivitis [Unknown]

NARRATIVE: CASE EVENT DATE: 20231125
